FAERS Safety Report 6749413-3 (Version None)
Quarter: 2010Q2

REPORT INFORMATION
  Report Type: 
  Country: None (occurrence: None)
  Receive Date: 20100527
  Receipt Date: 20100527
  Transmission Date: 20101027
  Serious: No
  Sender: FDA-Public Use
  Company Number: None

PATIENT
  Age: 67 Year
  Sex: Female
  Weight: 108.8633 kg

DRUGS (2)
  1. TEKTURNA HCT [Suspect]
     Indication: HYPERTENSION
     Dosage: 1 DAILY
     Dates: start: 20100222, end: 20100409
  2. COLCHICINE 0.6 MG TAB [Suspect]
     Indication: GOUT
     Dosage: 2 X A DAY
     Dates: start: 20100429, end: 20100502

REACTIONS (6)
  - BLOOD POTASSIUM DECREASED [None]
  - DIARRHOEA [None]
  - DIZZINESS [None]
  - FATIGUE [None]
  - GOUT [None]
  - HYPERTENSION [None]
